FAERS Safety Report 9513294 (Version 1)
Quarter: 2013Q3

REPORT INFORMATION
  Report Type: Report from Study
  Country: JP (occurrence: JP)
  Receive Date: 20130910
  Receipt Date: 20130910
  Transmission Date: 20140515
  Serious: No
  Sender: FDA-Public Use
  Company Number: JP-JNJFOC-20130816441

PATIENT
  Age: 40 Year
  Sex: Male

DRUGS (11)
  1. STELARA [Suspect]
     Indication: PSORIASIS
     Route: 058
     Dates: start: 20120704, end: 20120704
  2. STELARA [Suspect]
     Indication: PSORIASIS
     Route: 058
     Dates: start: 20130529, end: 20130529
  3. STELARA [Suspect]
     Indication: PSORIASIS
     Route: 058
     Dates: start: 20130306, end: 20130306
  4. STELARA [Suspect]
     Indication: PSORIASIS
     Route: 058
     Dates: start: 20121212, end: 20121212
  5. STELARA [Suspect]
     Indication: PSORIASIS
     Route: 058
     Dates: start: 20120919, end: 20120919
  6. STELARA [Suspect]
     Indication: PSORIASIS
     Route: 058
     Dates: start: 20130821, end: 20130821
  7. STELARA [Suspect]
     Indication: PSORIASIS
     Route: 058
     Dates: start: 20120418, end: 20120418
  8. STELARA [Suspect]
     Indication: PSORIASIS
     Route: 058
     Dates: start: 20120125, end: 20120125
  9. STELARA [Suspect]
     Indication: PSORIASIS
     Route: 058
     Dates: start: 20111102, end: 20111102
  10. STELARA [Suspect]
     Indication: PSORIASIS
     Route: 058
     Dates: start: 20110810, end: 20110810
  11. STELARA [Suspect]
     Indication: PSORIASIS
     Route: 058
     Dates: start: 20110713, end: 20110713

REACTIONS (3)
  - Hyperuricaemia [Recovered/Resolved]
  - White blood cell count increased [Recovered/Resolved]
  - Hepatic function abnormal [Recovered/Resolved]
